FAERS Safety Report 8331298-5 (Version None)
Quarter: 2012Q2

REPORT INFORMATION
  Report Type: 
  Country: None (occurrence: None)
  Receive Date: 20120502
  Receipt Date: 20120413
  Transmission Date: 20120825
  Serious: No
  Sender: FDA-Public Use
  Company Number: US-AMGEN-USASP2012014518

PATIENT
  Age: 41 Year
  Sex: Female

DRUGS (12)
  1. METHOTREXATE [Concomitant]
     Dosage: 25 MG WEEKLY
     Route: 058
  2. METHOTREXATE [Concomitant]
     Dosage: 12.5 MG, QWK
     Route: 048
  3. PRENATAL VITAMINS                  /01549301/ [Concomitant]
     Dosage: DAILY
     Route: 048
  4. ENBREL [Suspect]
     Indication: RHEUMATOID ARTHRITIS
     Dosage: 50 MG, QWK
     Route: 058
     Dates: start: 20060101
  5. FOLIC ACID [Concomitant]
     Dosage: DAILY
     Route: 048
  6. LEVOTHYROXINE SODIUM [Concomitant]
     Dosage: 100 MCG DAILY
     Route: 048
  7. PREDNISONE [Concomitant]
     Dosage: 15 MG, QD
     Route: 048
  8. VITAMIN D [Concomitant]
     Dosage: DAILY
     Route: 048
  9. METHOTREXATE [Concomitant]
     Dosage: 20 MG, QWK
     Route: 048
  10. PREDNISONE [Concomitant]
     Indication: RHEUMATOID ARTHRITIS
     Dosage: 10 MG, QD
     Route: 048
  11. TYLENOL (CAPLET) [Concomitant]
     Dosage: UNK
     Route: 048
  12. RELAFEN [Concomitant]
     Dosage: 1500 MG DAILY
     Route: 048

REACTIONS (2)
  - NEPHROLITHIASIS [None]
  - VASCULITIS [None]
